FAERS Safety Report 12733658 (Version 1)
Quarter: 2016Q3

REPORT INFORMATION
  Report Type: Spontaneous
  Country: AU (occurrence: AU)
  Receive Date: 20160912
  Receipt Date: 20160912
  Transmission Date: 20161109
  Serious: Yes (Hospitalization)
  Sender: FDA-Public Use
  Company Number: AU-NAPPMUNDI-GBR-2016-0040302

PATIENT
  Age: 75 Year
  Sex: Female

DRUGS (1)
  1. NORSPAN [Suspect]
     Active Substance: BUPRENORPHINE
     Indication: ABDOMINAL PAIN UPPER
     Dosage: 25 MCG, Q1H
     Route: 062
     Dates: start: 201608, end: 201608

REACTIONS (3)
  - Drug prescribing error [Unknown]
  - Pancreatitis [Unknown]
  - Incorrect dose administered [Unknown]

NARRATIVE: CASE EVENT DATE: 201608
